FAERS Safety Report 12524827 (Version 1)
Quarter: 2016Q3

REPORT INFORMATION
  Report Type: Spontaneous
  Country: BR (occurrence: BR)
  Receive Date: 20160704
  Receipt Date: 20160704
  Transmission Date: 20161109
  Serious: Yes (Other)
  Sender: FDA-Public Use
  Company Number: BR-PFIZER INC-2016323028

PATIENT
  Age: 65 Year
  Sex: Female

DRUGS (4)
  1. CARDIZEM [Concomitant]
     Active Substance: DILTIAZEM HYDROCHLORIDE
     Dosage: UNK
  2. ATLANSIL [Suspect]
     Active Substance: AMIODARONE
     Indication: ARRHYTHMIA
     Dosage: 100 MG, DAILY
     Route: 048
     Dates: start: 201601
  3. LOSARTAN. [Concomitant]
     Active Substance: LOSARTAN
     Dosage: UNK
  4. NEBILET [Concomitant]
     Active Substance: NEBIVOLOL
     Dosage: UNK

REACTIONS (2)
  - Abdominal pain [Recovering/Resolving]
  - Acute myocardial infarction [Unknown]

NARRATIVE: CASE EVENT DATE: 201604
